FAERS Safety Report 5042836-2 (Version None)
Quarter: 2006Q3

REPORT INFORMATION
  Report Type: 
  Country: None (occurrence: None)
  Receive Date: 20060705
  Receipt Date: 20060629
  Transmission Date: 20061208
  Serious: Yes (Other)
  Sender: FDA-Public Use
  Company Number: US-GLAXOSMITHKLINE-A0610773A

PATIENT
  Age: 34 Year
  Sex: Female

DRUGS (2)
  1. PAXIL [Suspect]
     Dosage: 10MG PER DAY
     Route: 048
     Dates: start: 20000101
  2. NO CONCURRENT MEDICATION [Concomitant]

REACTIONS (15)
  - CEREBROVASCULAR ACCIDENT [None]
  - CONVULSION [None]
  - DISORIENTATION [None]
  - DIZZINESS [None]
  - DRUG EXPOSURE VIA BREAST MILK [None]
  - DRUG WITHDRAWAL SYNDROME [None]
  - EYE PAIN [None]
  - FEELING ABNORMAL [None]
  - GENERAL PHYSICAL HEALTH DETERIORATION [None]
  - HEADACHE [None]
  - IRRITABILITY [None]
  - NORMAL NEWBORN [None]
  - PARAESTHESIA [None]
  - PREGNANCY [None]
  - TINNITUS [None]
